FAERS Safety Report 8152097 (Version 2)
Quarter: 2013Q1

REPORT INFORMATION
  Report Type: Spontaneous
  Country: US (occurrence: US)
  Receive Date: 20110922
  Receipt Date: 20130215
  Transmission Date: 20140127
  Serious: Yes (Other)
  Sender: FDA-Public Use
  Company Number: US-ASTRAZENECA-2011SE12681

PATIENT
  Sex: Male

DRUGS (5)
  1. SEROQUEL [Suspect]
     Dosage: ONE TO TWO TABLETS AT NIGHT
     Route: 048
     Dates: start: 200412
  2. MOTRIN [Concomitant]
     Dosage: ONE TABLET TWICE PER DAY
     Dates: start: 200412
  3. OXYCONTIN [Concomitant]
     Dosage: ONE TABLET EVERY 12 HOURS
     Dates: start: 200412
  4. KLONOPIN [Concomitant]
     Dates: start: 200412
  5. WELLBUTRIN SR [Concomitant]
     Dates: start: 200412

REACTIONS (3)
  - Pancreatitis [Unknown]
  - Diabetic coma [Unknown]
  - Type 2 diabetes mellitus [Unknown]
